FAERS Safety Report 9507930 (Version 1)
Quarter: 2013Q3

REPORT INFORMATION
  Report Type: Spontaneous
  Country: BR (occurrence: BR)
  Receive Date: 20130909
  Receipt Date: 20130909
  Transmission Date: 20140515
  Serious: Yes (Other)
  Sender: FDA-Public Use
  Company Number: PHHY2013BR098262

PATIENT
  Sex: Female

DRUGS (4)
  1. EXELON PATCH [Suspect]
     Dosage: 4.6 MG (PATCH 5 CM2), UNK
     Route: 062
  2. EXELON PATCH [Suspect]
     Dosage: 9.5 MG (PATCH 10 CM2), UNK
     Route: 062
  3. EXELON PATCH [Suspect]
     Dosage: 4.6 MG (PATCH 5 CM2), UNK
     Route: 062
  4. PAROXETINE [Suspect]
     Dosage: UNK UKN, UNK
     Dates: start: 201008

REACTIONS (1)
  - Hypertensive crisis [Unknown]
